FAERS Safety Report 25190219 (Version 1)
Quarter: 2025Q2

REPORT INFORMATION
  Report Type: Spontaneous
  Country: FR (occurrence: FR)
  Receive Date: 20250411
  Receipt Date: 20250411
  Transmission Date: 20250716
  Serious: Yes (Hospitalization)
  Sender: MYLAN
  Company Number: None

PATIENT
  Age: 76 Year
  Sex: Male
  Weight: 74 kg

DRUGS (20)
  1. ATORVASTATIN [Suspect]
     Active Substance: ATORVASTATIN
     Indication: Hypercholesterolaemia
     Dosage: 40 MILLIGRAM, QD
     Dates: start: 20241129
  2. ATORVASTATIN [Suspect]
     Active Substance: ATORVASTATIN
     Dosage: 40 MILLIGRAM, QD
     Route: 048
     Dates: start: 20241129
  3. ATORVASTATIN [Suspect]
     Active Substance: ATORVASTATIN
     Dosage: 40 MILLIGRAM, QD
     Route: 048
     Dates: start: 20241129
  4. ATORVASTATIN [Suspect]
     Active Substance: ATORVASTATIN
     Dosage: 40 MILLIGRAM, QD
     Dates: start: 20241129
  5. AMIODARONE [Suspect]
     Active Substance: AMIODARONE
     Indication: Atrial fibrillation
  6. AMIODARONE [Suspect]
     Active Substance: AMIODARONE
     Route: 048
  7. AMIODARONE [Suspect]
     Active Substance: AMIODARONE
     Route: 048
  8. AMIODARONE [Suspect]
     Active Substance: AMIODARONE
  9. CLOPIDOGREL [Suspect]
     Active Substance: CLOPIDOGREL BISULFATE
     Indication: Myocardial ischaemia
     Dosage: 75 MILLIGRAM, QD
     Dates: start: 20241129
  10. CLOPIDOGREL [Suspect]
     Active Substance: CLOPIDOGREL BISULFATE
     Dosage: 75 MILLIGRAM, QD
     Route: 048
     Dates: start: 20241129
  11. CLOPIDOGREL [Suspect]
     Active Substance: CLOPIDOGREL BISULFATE
     Dosage: 75 MILLIGRAM, QD
     Route: 048
     Dates: start: 20241129
  12. CLOPIDOGREL [Suspect]
     Active Substance: CLOPIDOGREL BISULFATE
     Dosage: 75 MILLIGRAM, QD
     Dates: start: 20241129
  13. DAPAGLIFLOZIN [Suspect]
     Active Substance: DAPAGLIFLOZIN
     Indication: Cardiac failure
  14. DAPAGLIFLOZIN [Suspect]
     Active Substance: DAPAGLIFLOZIN
     Route: 048
  15. DAPAGLIFLOZIN [Suspect]
     Active Substance: DAPAGLIFLOZIN
     Route: 048
  16. DAPAGLIFLOZIN [Suspect]
     Active Substance: DAPAGLIFLOZIN
  17. OPTIRAY [Suspect]
     Active Substance: IOVERSOL
     Indication: Angiocardiogram
     Dates: start: 20241129, end: 20241129
  18. OPTIRAY [Suspect]
     Active Substance: IOVERSOL
     Route: 042
     Dates: start: 20241129, end: 20241129
  19. OPTIRAY [Suspect]
     Active Substance: IOVERSOL
     Route: 042
     Dates: start: 20241129, end: 20241129
  20. OPTIRAY [Suspect]
     Active Substance: IOVERSOL
     Dates: start: 20241129, end: 20241129

REACTIONS (2)
  - Rash macular [Recovering/Resolving]
  - Pruritus [Recovered/Resolved]

NARRATIVE: CASE EVENT DATE: 20241206
